FAERS Safety Report 6664684-X (Version None)
Quarter: 2010Q2

REPORT INFORMATION
  Report Type: 
  Country: None (occurrence: None)
  Receive Date: 20100401
  Receipt Date: 20100315
  Transmission Date: 20101027
  Serious: Yes (Hospitalization, Disabling)
  Sender: FDA-Public Use
  Company Number: CA-MERCK-1003USA02373

PATIENT
  Age: 57 Year
  Sex: Female

DRUGS (20)
  1. ZOCOR [Suspect]
     Route: 048
  2. ACETAMINOPHEN [Concomitant]
     Route: 065
  3. ADVAIR DISKUS 100/50 [Concomitant]
     Route: 065
  4. APO-FLURAZEPAM [Concomitant]
     Route: 065
  5. APO GAB [Concomitant]
     Route: 065
  6. ARTHROTEC [Concomitant]
     Route: 065
  7. ASPIRIN [Concomitant]
     Route: 065
  8. BENTYLOL [Concomitant]
     Route: 065
  9. CALCIUM (UNSPECIFIED) [Concomitant]
     Route: 065
  10. DEMEROL [Concomitant]
     Route: 065
  11. EPIPEN [Concomitant]
     Route: 065
  12. FOSAMAX [Concomitant]
     Route: 065
  13. GEN-SIMVASTATIN [Suspect]
     Route: 065
  14. CHONDROITIN SULFATE SODIUM AND GLUCOSAMINE SULFATE [Concomitant]
     Route: 065
  15. LACTULOSE [Concomitant]
     Route: 065
  16. NOVO-LORAZEM [Concomitant]
     Route: 065
  17. PANTOPRAZOLE [Concomitant]
     Route: 065
  18. PLAVIX [Concomitant]
     Route: 065
  19. REACTINE [Concomitant]
     Route: 065
  20. VITAMIN D (UNSPECIFIED) [Concomitant]
     Route: 065

REACTIONS (25)
  - ABDOMINAL DISCOMFORT [None]
  - ARTHRALGIA [None]
  - ASTHENIA [None]
  - BACK PAIN [None]
  - BIOPSY MUSCLE ABNORMAL [None]
  - BLOOD CREATINE PHOSPHOKINASE INCREASED [None]
  - BURNING SENSATION [None]
  - CHEST X-RAY ABNORMAL [None]
  - COLLAPSE OF LUNG [None]
  - DISTURBANCE IN ATTENTION [None]
  - DIZZINESS [None]
  - DYSPNOEA [None]
  - ECHOCARDIOGRAM ABNORMAL [None]
  - FATIGUE [None]
  - GAIT DISTURBANCE [None]
  - HYPOAESTHESIA [None]
  - IMPAIRED WORK ABILITY [None]
  - MEMORY IMPAIRMENT [None]
  - MYOPATHY TOXIC [None]
  - NON-CARDIAC CHEST PAIN [None]
  - OEDEMA PERIPHERAL [None]
  - PAIN [None]
  - PELVIC PAIN [None]
  - TREMOR [None]
  - WHEEZING [None]
